FAERS Safety Report 5515919-8 (Version None)
Quarter: 2007Q4

REPORT INFORMATION
  Report Type: 
  Country: None (occurrence: None)
  Receive Date: 20071114
  Receipt Date: 20071105
  Transmission Date: 20080405
  Serious: Yes (Death)
  Sender: FDA-Public Use
  Company Number: CL-ABBOTT-07P-034-0419726-00

PATIENT
  Sex: Male
  Weight: 59 kg

DRUGS (7)
  1. KALETRA [Suspect]
     Indication: HIV INFECTION
     Route: 048
     Dates: start: 20070130
  2. ZIDOVUDINE [Concomitant]
     Indication: HIV INFECTION
     Route: 048
     Dates: start: 20070130, end: 20070923
  3. BACTRIM [Concomitant]
     Indication: PROPHYLAXIS
     Dates: start: 20060801
  4. ALOPUTINOL [Concomitant]
     Indication: DRUG USE FOR UNKNOWN INDICATION
     Route: 048
  5. IMIPENEM [Concomitant]
     Indication: FEBRILE NEUTROPENIA
     Dates: start: 20070626, end: 20070712
  6. FLUCONAZOLE [Concomitant]
     Indication: FEBRILE NEUTROPENIA
     Dates: start: 20070626, end: 20070712
  7. CHEMOTHERAPHY (CHCLOPHOSPHAMIDE VYNCRISTINE, PREDNISONE) [Concomitant]
     Indication: KAPOSI'S SARCOMA
     Dosage: 3RD
     Route: 048
     Dates: start: 20070727

REACTIONS (3)
  - CACHEXIA [None]
  - HIV WASTING SYNDROME [None]
  - KAPOSI'S SARCOMA [None]
